FAERS Safety Report 13359400 (Version 2)
Quarter: 2017Q2

REPORT INFORMATION
  Report Type: Other
  Country: FR (occurrence: FR)
  Receive Date: 20170322
  Receipt Date: 20170425
  Transmission Date: 20170830
  Serious: Yes (Hospitalization)
  Sender: FDA-Public Use
  Company Number: FR-HIKMA PHARMACEUTICALS CO. LTD-2017FR002689

PATIENT

DRUGS (20)
  1. PRIMPERAN [Concomitant]
     Active Substance: METOCLOPRAMIDE HYDROCHLORIDE
     Dosage: 1 DF, BID
  2. PRINCI B [Concomitant]
     Active Substance: PYRIDOXINE\THIAMINE
     Dosage: 2 DF, DAILY
  3. MIANSERINE [Concomitant]
     Active Substance: MIANSERIN HYDROCHLORIDE
     Dosage: 2 DF, DAILY
  4. DIFFU K [Concomitant]
     Active Substance: POTASSIUM CHLORIDE
     Dosage: 2 DF, BID
  5. OXYNORMORO [Concomitant]
     Active Substance: OXYCODONE
  6. HYDROCORTISONE. [Concomitant]
     Active Substance: HYDROCORTISONE
     Dosage: 100 MG PER PERFUSION 100ML/H
     Dates: start: 20170215, end: 20170215
  7. REMSIMA [Suspect]
     Active Substance: INFLIXIMAB
     Dosage: 350 MG, CYCLIC
     Route: 042
     Dates: start: 20170215, end: 20170215
  8. MOVICOL [Concomitant]
     Active Substance: POLYETHYLENE GLYCOL 3350\POTASSIUM CHLORIDE\SODIUM BICARBONATE\SODIUM CHLORIDE
  9. RIFINAH [Concomitant]
     Active Substance: ISONIAZID\RIFAMPIN
     Dosage: 2 DF, DAILY
  10. INDOCID                            /00003801/ [Concomitant]
     Active Substance: INDOMETHACIN
     Dosage: 25 MG, DAILY
  11. LOVENOX [Concomitant]
     Active Substance: ENOXAPARIN SODIUM
     Dosage: 4000 IU, DAILY
  12. REMSIMA [Suspect]
     Active Substance: INFLIXIMAB
     Dosage: 350 MG, CYCLIC
     Route: 042
     Dates: start: 20160913, end: 20160913
  13. OXYCODONE [Concomitant]
     Active Substance: OXYCODONE
     Dosage: 30 MG, BID
  14. LANSOPRAZOLE. [Concomitant]
     Active Substance: LANSOPRAZOLE
     Dosage: 30 MG, DAILY
  15. POLARAMINE [Concomitant]
     Active Substance: DEXCHLORPHENIRAMINE MALEATE
     Dosage: 5 MG PER PERFUSION 20 ML/H
     Dates: start: 20170215, end: 20170215
  16. HYDROXYZINE HYDROCHLORIDE. [Concomitant]
     Active Substance: HYDROXYZINE HYDROCHLORIDE
     Dosage: 1 DF, DAILY
  17. CORTANCYL [Concomitant]
     Active Substance: PREDNISONE
     Dosage: 20 MG, DAILY
  18. VERSATIS [Concomitant]
     Active Substance: LIDOCAINE
     Dosage: 3 DF, DAILY
  19. REMSIMA [Suspect]
     Active Substance: INFLIXIMAB
     Indication: AXIAL SPONDYLOARTHRITIS
     Dosage: 350 MG, CYCLIC
     Route: 042
     Dates: start: 20160830, end: 20160830
  20. DOLIPRANE [Concomitant]
     Active Substance: ACETAMINOPHEN

REACTIONS (3)
  - Drug administration error [Unknown]
  - Inappropriate schedule of drug administration [Unknown]
  - Anaphylactic reaction [Recovered/Resolved]

NARRATIVE: CASE EVENT DATE: 20170215
